FAERS Safety Report 6551780-0 (Version None)
Quarter: 2010Q1

REPORT INFORMATION
  Report Type: 
  Country: None (occurrence: None)
  Receive Date: 20100126
  Receipt Date: 20100121
  Transmission Date: 20100710
  Serious: Yes (Life-Threatening)
  Sender: FDA-Public Use
  Company Number: JP-ROCHE-680320

PATIENT
  Sex: Male
  Weight: 72 kg

DRUGS (3)
  1. AVASTIN [Suspect]
     Indication: LUNG ADENOCARCINOMA
     Dosage: DISCONTINUED
     Route: 041
     Dates: start: 20100108, end: 20100108
  2. CARBOPLATIN [Suspect]
     Indication: LUNG ADENOCARCINOMA
     Route: 041
     Dates: start: 20100108
  3. ALIMTA [Suspect]
     Indication: LUNG ADENOCARCINOMA
     Route: 041
     Dates: start: 20100108

REACTIONS (1)
  - LUNG DISORDER [None]
